FAERS Safety Report 22274573 (Version 1)
Quarter: 2023Q2

REPORT INFORMATION
  Report Type: Spontaneous
  Country: US (occurrence: US)
  Receive Date: 20230502
  Receipt Date: 20230502
  Transmission Date: 20230721
  Serious: Yes (Hospitalization, Other)
  Sender: FDA-Public Use
  Company Number: US-APOTEX-2023AP007590

PATIENT
  Age: 21 Year
  Sex: Male

DRUGS (10)
  1. ATOMOXETINE [Interacting]
     Active Substance: ATOMOXETINE
     Indication: Product used for unknown indication
     Dosage: 40 MILLIGRAM, QD
     Route: 065
  2. ATOMOXETINE [Interacting]
     Active Substance: ATOMOXETINE
     Dosage: 60 MILLIGRAM, QD
     Route: 065
  3. ATOMOXETINE [Interacting]
     Active Substance: ATOMOXETINE
     Dosage: 40 MILLIGRAM, QD
     Route: 065
  4. BUPROPION [Interacting]
     Active Substance: BUPROPION
     Indication: Product used for unknown indication
     Dosage: 150 MILLIGRAM, QD
     Route: 065
  5. BUPROPION [Interacting]
     Active Substance: BUPROPION
     Dosage: 300 MILLIGRAM, QD
     Route: 065
  6. BUPROPION [Interacting]
     Active Substance: BUPROPION
     Dosage: 300 MILLIGRAM, QD
     Route: 065
  7. QUETIAPINE [Concomitant]
     Active Substance: QUETIAPINE
     Indication: Insomnia
     Dosage: 100 MILLIGRAM, Q.H.S.
     Route: 065
  8. QUETIAPINE [Concomitant]
     Active Substance: QUETIAPINE
     Dosage: 400 MILLIGRAM, Q.H.S.
     Route: 065
  9. QUETIAPINE [Concomitant]
     Active Substance: QUETIAPINE
     Dosage: 200 MILLIGRAM, Q.H.S.
     Route: 065
  10. ALPRAZOLAM [Concomitant]
     Active Substance: ALPRAZOLAM
     Indication: Anxiety
     Dosage: 0.25 MILLIGRAM, PRN
     Route: 065

REACTIONS (25)
  - Drug interaction [Unknown]
  - Toxicity to various agents [Unknown]
  - Generalised tonic-clonic seizure [Recovered/Resolved]
  - Distractibility [Unknown]
  - Hallucination, visual [Unknown]
  - Hallucination, tactile [Recovered/Resolved]
  - Disorientation [Recovered/Resolved]
  - Drooling [Recovered/Resolved]
  - Blood creatine phosphokinase increased [Recovered/Resolved]
  - Transaminases increased [Recovered/Resolved]
  - Hallucination, auditory [Unknown]
  - Flight of ideas [Unknown]
  - Tangentiality [Unknown]
  - Disturbance in attention [Recovered/Resolved]
  - Psychotic disorder [Recovered/Resolved]
  - Confusional state [Recovered/Resolved]
  - Manic symptom [Recovered/Resolved]
  - Leukocytosis [Recovered/Resolved]
  - Psychomotor hyperactivity [Unknown]
  - Somnolence [Recovered/Resolved]
  - Restlessness [Unknown]
  - Tremor [Recovered/Resolved]
  - Insomnia [Unknown]
  - Sinus tachycardia [Recovered/Resolved]
  - Anxiety [Unknown]
